FAERS Safety Report 7504382-3 (Version None)
Quarter: 2011Q2

REPORT INFORMATION
  Report Type: 
  Country: None (occurrence: None)
  Receive Date: 20110525
  Receipt Date: 20110518
  Transmission Date: 20111010
  Serious: Yes (Hospitalization, Other)
  Sender: FDA-Public Use
  Company Number: MX-SANOFI-AVENTIS-2011SA031211

PATIENT
  Age: 67 Year
  Sex: Female
  Weight: 75 kg

DRUGS (3)
  1. AMLODIPINE [Concomitant]
     Route: 048
     Dates: start: 19920101
  2. LANTUS [Suspect]
     Indication: TYPE 2 DIABETES MELLITUS
     Route: 058
     Dates: start: 20070101
  3. METFORMIN HCL [Concomitant]
     Indication: TYPE 2 DIABETES MELLITUS
     Route: 065
     Dates: end: 20070101

REACTIONS (9)
  - HYPERGLYCAEMIA [None]
  - WEIGHT DECREASED [None]
  - ASTHENIA [None]
  - BACK PAIN [None]
  - RENAL NEOPLASM [None]
  - VERTIGO [None]
  - HYPOTENSION [None]
  - DEEP VEIN THROMBOSIS [None]
  - HYPOTHYROIDISM [None]
